FAERS Safety Report 8111209-8 (Version None)
Quarter: 2012Q1

REPORT INFORMATION
  Report Type: 
  Country: None (occurrence: None)
  Receive Date: 20120203
  Receipt Date: 20110623
  Transmission Date: 20120608
  Serious: No
  Sender: FDA-Public Use
  Company Number: US-GLAXOSMITHKLINE-A0932728A

PATIENT
  Age: 20 Year
  Sex: Male

DRUGS (2)
  1. LAMICTAL [Suspect]
     Indication: OBSESSIVE-COMPULSIVE DISORDER
     Dosage: 100MG TWICE PER DAY
     Route: 048
  2. LUVOX [Concomitant]

REACTIONS (3)
  - HYPERHIDROSIS [None]
  - DEHYDRATION [None]
  - IMPAIRED WORK ABILITY [None]
